FAERS Safety Report 4347023-9 (Version None)
Quarter: 2004Q2

REPORT INFORMATION
  Report Type: 
  Country: None (occurrence: None)
  Receive Date: 20040426
  Receipt Date: 20040421
  Transmission Date: 20050107
  Serious: Yes (Hospitalization)
  Sender: FDA-Public Use
  Company Number: US-BRISTOL-MYERS SQUIBB COMPANY-12567137

PATIENT
  Sex: Male

DRUGS (7)
  1. ERBITUX [Suspect]
     Indication: RECTAL CANCER METASTATIC
     Dosage: LOADING DOSE
     Route: 042
     Dates: start: 20040421, end: 20040421
  2. TAGAMET [Concomitant]
     Indication: PREMEDICATION
     Route: 042
     Dates: start: 20040421, end: 20040421
  3. BENADRYL [Concomitant]
     Indication: PREMEDICATION
     Dates: start: 20040421, end: 20040421
  4. TYLENOL (CAPLET) [Concomitant]
     Indication: PREMEDICATION
     Dates: start: 20040421, end: 20040421
  5. BEXTRA [Concomitant]
  6. RITALIN [Concomitant]
  7. ALBUTEROL [Concomitant]

REACTIONS (4)
  - APNOEA [None]
  - BRONCHOSPASM [None]
  - DYSPNOEA [None]
  - MYOCARDIAL INFARCTION [None]
